FAERS Safety Report 8302065-3 (Version None)
Quarter: 2012Q2

REPORT INFORMATION
  Report Type: 
  Country: None (occurrence: None)
  Receive Date: 20120420
  Receipt Date: 20120417
  Transmission Date: 20120825
  Serious: Yes (Hospitalization)
  Sender: FDA-Public Use
  Company Number: US-MERCK-0804USA02857

PATIENT
  Age: 71 Year
  Sex: Female
  Weight: 77 kg

DRUGS (14)
  1. QUINAPRIL HYDROCHLORIDE [Concomitant]
     Route: 065
  2. FOSAMAX [Suspect]
     Indication: OSTEOPOROSIS
     Route: 048
     Dates: start: 19940101
  3. HYDROCHLOROTHIAZIDE [Concomitant]
     Route: 065
  4. OMEPRAZOLE [Concomitant]
     Route: 065
  5. SPIRIVA [Concomitant]
     Route: 065
  6. ZOCOR [Concomitant]
     Route: 048
  7. PLAVIX [Concomitant]
     Route: 065
  8. TOPROL-XL [Concomitant]
     Route: 065
  9. OS-CAL D [Concomitant]
     Route: 065
  10. METOPROLOL [Concomitant]
     Route: 065
  11. ALBUTEROL [Concomitant]
     Route: 065
  12. FOSAMAX [Suspect]
     Route: 048
     Dates: start: 20020801
  13. CARDIZEM [Concomitant]
     Route: 065
  14. ATROVENT [Concomitant]
     Route: 065

REACTIONS (10)
  - TOOTHACHE [None]
  - GINGIVAL DISORDER [None]
  - GINGIVAL INFECTION [None]
  - BONE LOSS [None]
  - DENTAL CARIES [None]
  - CARDIAC FAILURE CONGESTIVE [None]
  - TOOTH LOSS [None]
  - LOOSE TOOTH [None]
  - TOOTH DISORDER [None]
  - TOOTH EXTRACTION [None]
